FAERS Safety Report 7487634-5 (Version None)
Quarter: 2011Q2

REPORT INFORMATION
  Report Type: 
  Country: None (occurrence: None)
  Receive Date: 20110518
  Receipt Date: 20081001
  Transmission Date: 20111010
  Serious: Yes (Death, Hospitalization, Other)
  Sender: FDA-Public Use
  Company Number: US-BAYER-2011-006498

PATIENT
  Age: 71 Year
  Sex: Female

DRUGS (15)
  1. PREDNISONE [Concomitant]
     Dosage: 2.5 MG, QD
  2. CHOLESTYRAMINE [Concomitant]
     Dosage: 4 GRAM AT NOON EVERY DAY
  3. ACETYLSALICYLIC ACID SRT [Concomitant]
     Dosage: 81 MG EVERY OTHER DAY
  4. CALCIUM [CALCIUM] [Concomitant]
     Dosage: 3 TIMES A DAY WITH MEALS
  5. VITAMIN K TAB [Concomitant]
     Dosage: 10 MG, UNK
  6. NEORAL [Concomitant]
     Dosage: 25 MG, TID
  7. TOPROL-XL [Concomitant]
     Dosage: 25 MG, BID
  8. TRASYLOL [Suspect]
     Dosage: 279 ML LOADING DOSE FOLLOWED BY 70 ML / HOUR INFUSION
     Route: 042
     Dates: start: 20070330, end: 20070330
  9. TRASYLOL [Suspect]
     Indication: TRICUSPID VALVE REPLACEMENT
     Dosage: 1.4 ML INITIAL TEST DOSE
     Route: 042
     Dates: start: 20070330, end: 20070330
  10. RED BLOOD CELLS [Concomitant]
     Dosage: 500 CC
     Route: 042
     Dates: start: 20070330
  11. CALCIUM CHLORIDE [Concomitant]
     Dosage: 1 G, UNK
  12. CEFUROXIME [Concomitant]
     Dosage: 3 G, UNK
  13. PLATELETS [Concomitant]
     Dosage: 241 CC
     Route: 042
     Dates: start: 20070330
  14. FRESH FROZEN PLASMA [Concomitant]
     Dosage: 1003 CC
     Route: 042
  15. LOTENSIN [Concomitant]
     Dosage: 40 MG, BID

REACTIONS (7)
  - ANXIETY [None]
  - INJURY [None]
  - DEATH [None]
  - STRESS [None]
  - UNEVALUABLE EVENT [None]
  - EMOTIONAL DISTRESS [None]
  - PAIN [None]
